FAERS Safety Report 18382604 (Version 2)
Quarter: 2020Q4

REPORT INFORMATION
  Report Type: Spontaneous
  Country: GB (occurrence: GB)
  Receive Date: 20201014
  Receipt Date: 20201021
  Transmission Date: 20210114
  Serious: Yes (Death, Life-Threatening, Hospitalization, Other)
  Sender: FDA-Public Use
  Company Number: GB-ADVANZ PHARMA-202010009307

PATIENT

DRUGS (1)
  1. PREDNISOLONE. [Suspect]
     Active Substance: PREDNISOLONE
     Indication: SARCOIDOSIS
     Dosage: 60 MG, QD

REACTIONS (4)
  - JC virus infection [Fatal]
  - Drug ineffective [Unknown]
  - Infection reactivation [Fatal]
  - Progressive multifocal leukoencephalopathy [Fatal]
